FAERS Safety Report 19227693 (Version 2)
Quarter: 2021Q2

REPORT INFORMATION
  Report Type: Report from Study
  Country: CA (occurrence: CA)
  Receive Date: 20210507
  Receipt Date: 20210514
  Transmission Date: 20210717
  Serious: Yes (Other)
  Sender: FDA-Public Use
  Company Number: CA-B.I. PHARMACEUTICALS,INC./RIDGEFIELD-2020-BI-022346

PATIENT
  Age: 81 Year
  Sex: Male

DRUGS (2)
  1. OFEV [Suspect]
     Active Substance: NINTEDANIB
     Dosage: 200
     Route: 048
     Dates: start: 20191030
  2. OFEV [Suspect]
     Active Substance: NINTEDANIB
     Indication: IDIOPATHIC PULMONARY FIBROSIS
     Dosage: 200MG
     Route: 048
     Dates: start: 20180113

REACTIONS (15)
  - Dyspnoea [Not Recovered/Not Resolved]
  - Nausea [Recovered/Resolved]
  - Vomiting [Not Recovered/Not Resolved]
  - Intentional product misuse [Recovered/Resolved]
  - Intentional product misuse [Recovered/Resolved]
  - Nausea [Recovered/Resolved]
  - Abdominal discomfort [Not Recovered/Not Resolved]
  - Constipation [Recovered/Resolved]
  - Abdominal pain upper [Not Recovered/Not Resolved]
  - Weight increased [Unknown]
  - Decreased appetite [Not Recovered/Not Resolved]
  - Constipation [Not Recovered/Not Resolved]
  - Vomiting [Recovered/Resolved]
  - Gastric disorder [Not Recovered/Not Resolved]
  - Weight increased [Recovered/Resolved]

NARRATIVE: CASE EVENT DATE: 20200301
